FAERS Safety Report 21531374 (Version 1)
Quarter: 2022Q4

REPORT INFORMATION
  Report Type: Spontaneous
  Country: US (occurrence: None)
  Receive Date: 20221028
  Receipt Date: 20221028
  Transmission Date: 20230112
  Serious: Yes (Hospitalization)
  Sender: FDA-Public Use
  Company Number: None

PATIENT
  Age: 56 Year
  Sex: Male

DRUGS (1)
  1. HEPARIN CALCIUM [Suspect]
     Active Substance: HEPARIN CALCIUM
     Indication: Cerebrovascular accident prophylaxis
     Dosage: OTHER STRENGTH : 25000UNT/ML;?
     Dates: start: 20220216, end: 20220217

REACTIONS (2)
  - Pulmonary embolism [None]
  - Heparin-induced thrombocytopenia [None]

NARRATIVE: CASE EVENT DATE: 20220216
